FAERS Safety Report 4663205-0 (Version None)
Quarter: 2005Q2

REPORT INFORMATION
  Report Type: 
  Country: None (occurrence: None)
  Receive Date: 20050513
  Receipt Date: 20050503
  Transmission Date: 20051028
  Serious: Yes (Disabling)
  Sender: FDA-Public Use
  Company Number: 2005070922

PATIENT
  Age: 65 Year
  Sex: Female
  Weight: 124.7392 kg

DRUGS (4)
  1. BEXTRA [Suspect]
     Indication: OSTEOARTHRITIS
     Dosage: 20 MG (20 MG, 1 IN 1 D), ORAL
     Route: 048
     Dates: end: 20041201
  2. BEXTRA [Suspect]
     Indication: RHEUMATOID ARTHRITIS
     Dosage: 20 MG (20 MG, 1 IN 1 D), ORAL
     Route: 048
     Dates: end: 20041201
  3. SIMVASTATIN [Suspect]
     Indication: BLOOD CHOLESTEROL INCREASED
     Dates: end: 20040101
  4. HYZAAR [Concomitant]

REACTIONS (10)
  - ABASIA [None]
  - ARTHRALGIA [None]
  - BLOOD CHOLESTEROL INCREASED [None]
  - DRY SKIN [None]
  - FALL [None]
  - HYPERAESTHESIA [None]
  - MUSCLE INJURY [None]
  - MUSCULAR WEAKNESS [None]
  - SKIN DISCOLOURATION [None]
  - SKIN EXFOLIATION [None]
